FAERS Safety Report 5421596-7 (Version None)
Quarter: 2007Q3

REPORT INFORMATION
  Report Type: 
  Country: None (occurrence: None)
  Receive Date: 20070821
  Receipt Date: 20070809
  Transmission Date: 20080115
  Serious: Yes (Other)
  Sender: FDA-Public Use
  Company Number: DE-PFIZER INC-2007067390

PATIENT
  Sex: Male

DRUGS (6)
  1. LYRICA [Suspect]
     Indication: NEURALGIA
     Route: 048
  2. SIMVASTATIN [Concomitant]
  3. ZOPICLONE [Concomitant]
  4. AMLODIPINE [Concomitant]
  5. ENABETA [Concomitant]
  6. ALL OTHER THERAPEUTIC PRODUCTS [Concomitant]

REACTIONS (3)
  - ORAL DISCOMFORT [None]
  - URTICARIA [None]
  - WEIGHT INCREASED [None]
